FAERS Safety Report 4974976-8 (Version None)
Quarter: 2006Q2

REPORT INFORMATION
  Report Type: 
  Country: None (occurrence: None)
  Receive Date: 20060414
  Receipt Date: 20060414
  Transmission Date: 20061013
  Serious: Yes (Other)
  Sender: FDA-Public Use
  Company Number: None

PATIENT
  Age: 34 Month
  Sex: Male
  Weight: 14.9687 kg

DRUGS (1)
  1. ZYRTEC [Suspect]
     Indication: MULTIPLE ALLERGIES
     Dosage: TAKES 1/4 TAB DAILY DAILY PO
     Route: 048
     Dates: start: 20060404, end: 20060412

REACTIONS (5)
  - ABNORMAL BEHAVIOUR [None]
  - AFFECTIVE DISORDER [None]
  - CRYING [None]
  - DEPRESSED MOOD [None]
  - IRRITABILITY [None]
